FAERS Safety Report 9352484 (Version 2)
Quarter: 2013Q4

REPORT INFORMATION
  Report Type: Spontaneous
  Country: US (occurrence: US)
  Receive Date: 20130617
  Receipt Date: 20131122
  Transmission Date: 20140711
  Serious: Yes (Death, Hospitalization)
  Sender: FDA-Public Use
  Company Number: US-B.I. PHARMACEUTICALS,INC./RIDGEFIELD-2013-BI-16749BP

PATIENT
  Age: 74 Year
  Sex: Female
  Weight: 63.5 kg

DRUGS (8)
  1. PRADAXA [Suspect]
     Indication: ATRIAL FIBRILLATION
     Route: 048
     Dates: start: 20110825, end: 20120305
  2. ZYRETEC [Concomitant]
     Indication: RHINITIS ALLERGIC
     Dosage: 10 MG
     Route: 048
     Dates: start: 201107, end: 201203
  3. MIRAPEX [Concomitant]
     Indication: RESTLESS LEGS SYNDROME
     Dosage: 0.375 MG
  4. EFFEXOR XR [Concomitant]
     Indication: DEPRESSION
     Route: 048
  5. SYNTHROID [Concomitant]
     Indication: HYPOTHYROIDISM
     Dosage: 125 MCG
     Route: 048
  6. HCTZ [Concomitant]
     Indication: HYPERTENSION
     Dosage: 25 MG
  7. PROVENTIL HFA [Concomitant]
     Route: 055
  8. OXYBUTIN CHLORIDE [Concomitant]
     Dosage: 10 MG
     Route: 048

REACTIONS (1)
  - Cerebral haemorrhage [Fatal]
